FAERS Safety Report 8766163 (Version 1)
Quarter: 2012Q4

REPORT INFORMATION
  Report Type: 
  Country: CH (occurrence: CH)
  Receive Date: 20120904
  Receipt Date: 20120904
  Transmission Date: 20130627
  Serious: Yes (Death)
  Sender: FDA-Public Use
  Company Number: CH-ASTRAZENECA-2012SE65712

PATIENT
  Age: 58 Year
  Sex: Female
  Weight: 57 kg

DRUGS (13)
  1. NEXIUM [Suspect]
     Route: 048
  2. ZITHROMAX [Suspect]
     Route: 048
  3. ZOLOFT [Suspect]
     Route: 048
  4. FERINJECT [Suspect]
     Route: 042
     Dates: start: 20120408
  5. FERINJECT [Suspect]
     Route: 042
     Dates: start: 20120408
  6. TOREM [Suspect]
     Route: 048
  7. MOTILIUM [Suspect]
     Route: 048
  8. BELOC ZOK [Concomitant]
     Route: 048
  9. DIGOXIN [Concomitant]
     Route: 048
  10. ALDACTONE [Concomitant]
     Route: 048
  11. MAGNESIOCARD [Concomitant]
     Route: 048
  12. FLATULEX [Concomitant]
     Route: 048
  13. SPIRIVA [Concomitant]

REACTIONS (3)
  - Anaphylactic reaction [Fatal]
  - Dyspnoea [Fatal]
  - Coma [Fatal]
